FAERS Safety Report 5748742-X (Version None)
Quarter: 2008Q2

REPORT INFORMATION
  Report Type: 
  Country: None (occurrence: None)
  Receive Date: 20080522
  Receipt Date: 20080513
  Transmission Date: 20081010
  Serious: Yes (Other)
  Sender: FDA-Public Use
  Company Number: S07-USA-06459-01

PATIENT
  Age: 21 Year
  Sex: Female
  Weight: 64.184 kg

DRUGS (3)
  1. LEXAPRO [Suspect]
     Indication: DEPRESSION
     Dosage: 5 MG QD;PO
     Route: 048
     Dates: start: 20071219, end: 20071221
  2. LEXAPRO [Suspect]
     Indication: DEPRESSION
     Dosage: 10 MG QD;PO
     Route: 048
     Dates: start: 20071222, end: 20080312
  3. NORGESTIMATE AND ETHINYL ESTRADIOL [Suspect]
     Indication: DRUG USE FOR UNKNOWN INDICATION
     Dates: start: 20051221

REACTIONS (7)
  - DIARRHOEA [None]
  - DIZZINESS [None]
  - DRUG INTERACTION [None]
  - GENITAL HAEMORRHAGE [None]
  - HEADACHE [None]
  - INTENTIONAL SELF-INJURY [None]
  - RASH [None]
